FAERS Safety Report 5635755-1 (Version None)
Quarter: 2008Q1

REPORT INFORMATION
  Report Type: 
  Country: None (occurrence: None)
  Receive Date: 20080220
  Receipt Date: 20080129
  Transmission Date: 20080703
  Serious: Yes (Death)
  Sender: FDA-Public Use
  Company Number: 2008S1001653

PATIENT
  Age: 42 Year
  Sex: Male

DRUGS (2)
  1. TRAMADOL HCL [Suspect]
     Dosage: ORAL
     Route: 048
  2. BROMAZEPAM (BROMAZEPAM) [Suspect]
     Dosage: ORAL
     Route: 048

REACTIONS (4)
  - ASPHYXIA [None]
  - CARDIO-RESPIRATORY ARREST [None]
  - DRUG TOXICITY [None]
  - MULTIPLE DRUG OVERDOSE [None]
